FAERS Safety Report 6271664-5 (Version None)
Quarter: 2009Q3

REPORT INFORMATION
  Report Type: 
  Country: None (occurrence: None)
  Receive Date: 20090717
  Receipt Date: 20070705
  Transmission Date: 20100115
  Serious: Yes (Other)
  Sender: FDA-Public Use
  Company Number: US-ASTRAZENECA-2006UW25975

PATIENT
  Age: 17831 Day
  Sex: Female
  Weight: 144.7 kg

DRUGS (21)
  1. SEROQUEL [Suspect]
     Indication: ANXIETY
     Route: 048
     Dates: start: 20010515, end: 20060330
  2. SEROQUEL [Suspect]
     Indication: DEPRESSION
     Route: 048
     Dates: start: 20010515, end: 20060330
  3. SEROQUEL [Suspect]
     Indication: INSOMNIA
     Route: 048
     Dates: start: 20010515, end: 20060330
  4. SEROQUEL [Suspect]
     Indication: AGITATION
     Route: 048
     Dates: start: 20010515, end: 20060330
  5. SEROQUEL [Suspect]
     Indication: PSYCHOMOTOR HYPERACTIVITY
     Route: 048
     Dates: start: 20010515, end: 20060330
  6. SEROQUEL [Suspect]
     Dosage: STRENGTH 25-300 MG
     Route: 048
     Dates: start: 20011108
  7. SEROQUEL [Suspect]
     Dosage: STRENGTH 25-300 MG
     Route: 048
     Dates: start: 20011108
  8. SEROQUEL [Suspect]
     Dosage: STRENGTH 25-300 MG
     Route: 048
     Dates: start: 20011108
  9. SEROQUEL [Suspect]
     Dosage: STRENGTH 25-300 MG
     Route: 048
     Dates: start: 20011108
  10. SEROQUEL [Suspect]
     Dosage: STRENGTH 25-300 MG
     Route: 048
     Dates: start: 20011108
  11. NEXIUM [Concomitant]
     Dates: start: 20030923
  12. KLONOPIN [Concomitant]
     Dates: start: 20011108
  13. SINGULAIR [Concomitant]
     Dates: start: 19990316
  14. PAXIL [Concomitant]
     Dates: start: 20011108
  15. VICODIN [Concomitant]
     Dosage: STRENGTH 5 MG
     Dates: start: 20011108
  16. EFFEXOR [Concomitant]
     Dates: start: 20011108
  17. LEVOTHYROXINE SODIUM [Concomitant]
     Dates: start: 20011108
  18. DIPHENOXYLATE [Concomitant]
     Dates: start: 20011108
  19. PHENERGAN [Concomitant]
     Dates: start: 20011108
  20. COMPAZINE [Concomitant]
     Dates: start: 20011108
  21. FLEXERIL [Concomitant]
     Dates: start: 20011108

REACTIONS (3)
  - DIABETES MELLITUS [None]
  - DIABETIC NEUROPATHY [None]
  - WEIGHT INCREASED [None]
